FAERS Safety Report 18700707 (Version 1)
Quarter: 2021Q1

REPORT INFORMATION
  Report Type: Report from Study
  Country: US (occurrence: US)
  Receive Date: 20210105
  Receipt Date: 20210105
  Transmission Date: 20210419
  Serious: Yes (Hospitalization)
  Sender: FDA-Public Use
  Company Number: US-MYLANLABS-2020M1104589

PATIENT
  Sex: Female
  Weight: 109 kg

DRUGS (1)
  1. GLATIRAMER [Suspect]
     Active Substance: GLATIRAMER
     Indication: MULTIPLE SCLEROSIS
     Dosage: 3 TIMES WEEKLY
     Route: 065

REACTIONS (3)
  - Pulmonary oedema [Unknown]
  - Cardiac disorder [Unknown]
  - Colectomy [Unknown]
